FAERS Safety Report 22869784 (Version 4)
Quarter: 2024Q1

REPORT INFORMATION
  Report Type: Report from Study
  Country: CA (occurrence: CA)
  Receive Date: 20230826
  Receipt Date: 20240319
  Transmission Date: 20240410
  Serious: Yes (Other)
  Sender: FDA-Public Use
  Company Number: CA-CELLTRION INC.-2023CA016821

PATIENT

DRUGS (7)
  1. YUFLYMA [Suspect]
     Active Substance: ADALIMUMAB-AATY
     Indication: Rheumatoid arthritis
     Dosage: 40 MG , WEEKS-2 WEEKS , SUBCUTANEOUS
     Route: 058
     Dates: start: 20230427
  2. YUFLYMA [Suspect]
     Active Substance: ADALIMUMAB-AATY
     Dosage: 40 MG , WEEKS-2 WEEKS , SUBCUTANEOUS
     Route: 058
     Dates: start: 20230817
  3. METHOTREXATE [Concomitant]
     Active Substance: METHOTREXATE
     Dosage: 10MG WEEKLY; STARTED 4 YEARS AGO.
  4. HYDROXYCHLOROQUINE [Concomitant]
     Active Substance: HYDROXYCHLOROQUINE
     Dosage: 200MG STARTED 4 YEARS AGO
  5. SULFASALAZINE [Concomitant]
     Active Substance: SULFASALAZINE
     Dosage: 1000MG DAILY
  6. FOLIC ACID [Concomitant]
     Active Substance: FOLIC ACID
     Dosage: 5MG DAILY
  7. DICLOFENAC [Concomitant]
     Active Substance: DICLOFENAC
     Dosage: 200MG BID PRN - HAS BEEN OUT OF THIS FOR A LONG TIME, WILL GET SOME MORE SOON

REACTIONS (2)
  - Rheumatoid arthritis [Recovering/Resolving]
  - Therapy interrupted [Recovering/Resolving]

NARRATIVE: CASE EVENT DATE: 20230821
